FAERS Safety Report 25481140 (Version 1)
Quarter: 2025Q2

REPORT INFORMATION
  Report Type: Spontaneous
  Country: OM (occurrence: OM)
  Receive Date: 20250626
  Receipt Date: 20250626
  Transmission Date: 20250717
  Serious: Yes (Death, Other)
  Sender: BAUSCH AND LOMB
  Company Number: OM-BAUSCH-BL-2025-007668

PATIENT
  Age: 45 Year
  Sex: Male

DRUGS (4)
  1. FLUOROURACIL [Suspect]
     Active Substance: FLUOROURACIL
     Indication: Squamous cell carcinoma
     Route: 065
  2. FLUOROURACIL [Suspect]
     Active Substance: FLUOROURACIL
     Indication: Renal cancer
  3. CISPLATIN [Suspect]
     Active Substance: CISPLATIN
     Indication: Squamous cell carcinoma
     Route: 065
  4. CISPLATIN [Suspect]
     Active Substance: CISPLATIN
     Indication: Renal cancer

REACTIONS (4)
  - Drug intolerance [Fatal]
  - Febrile neutropenia [Unknown]
  - Gastrointestinal toxicity [Unknown]
  - Therapy non-responder [Unknown]
